FAERS Safety Report 7319326-7 (Version None)
Quarter: 2011Q1

REPORT INFORMATION
  Report Type: 
  Country: None (occurrence: None)
  Receive Date: 20110228
  Receipt Date: 20100202
  Transmission Date: 20110831
  Serious: Yes (Other)
  Sender: FDA-Public Use
  Company Number: A0842603A

PATIENT
  Sex: Female

DRUGS (2)
  1. LAMICTAL [Suspect]
     Indication: EPILEPSY
     Dosage: 50TAB TWICE PER DAY
     Route: 048
     Dates: start: 20091215
  2. IBUPROFEN [Concomitant]

REACTIONS (2)
  - DIZZINESS [None]
  - CONVULSION [None]
